FAERS Safety Report 18392195 (Version 1)
Quarter: 2020Q4

REPORT INFORMATION
  Report Type: Spontaneous
  Country: US (occurrence: US)
  Receive Date: 20201016
  Receipt Date: 20201016
  Transmission Date: 20210114
  Serious: Yes (Hospitalization)
  Sender: FDA-Public Use
  Company Number: None

PATIENT
  Age: 64 Year
  Sex: Female

DRUGS (9)
  1. LEVEMIR [Concomitant]
     Active Substance: INSULIN DETEMIR
  2. TURMERIC [Concomitant]
     Active Substance: HERBALS\TURMERIC
  3. NOVOLOG [Concomitant]
     Active Substance: INSULIN ASPART
  4. PAROXETINE. [Concomitant]
     Active Substance: PAROXETINE
  5. VITMAIN D3 [Concomitant]
  6. KRILL OIL [Concomitant]
     Active Substance: DIETARY SUPPLEMENT\KRILL OIL
  7. HUMIRA [Suspect]
     Active Substance: ADALIMUMAB
     Indication: PSORIASIS
     Dosage: ?          OTHER FREQUENCY:EVERY 2 WEEKS;?
     Route: 058
  8. METFORMIN [Concomitant]
     Active Substance: METFORMIN HYDROCHLORIDE
  9. ZETIA [Concomitant]
     Active Substance: EZETIMIBE

REACTIONS (5)
  - Pustule [None]
  - Insurance issue [None]
  - Psoriasis [None]
  - Condition aggravated [None]
  - Product dose omission issue [None]

NARRATIVE: CASE EVENT DATE: 20201010
